APPROVED DRUG PRODUCT: TOLMETIN SODIUM
Active Ingredient: TOLMETIN SODIUM
Strength: EQ 400MG BASE
Dosage Form/Route: CAPSULE;ORAL
Application: A073393 | Product #001
Applicant: RISING PHARMA HOLDINGS INC
Approved: May 27, 1993 | RLD: No | RS: Yes | Type: RX